FAERS Safety Report 23638022 (Version 1)
Quarter: 2024Q1

REPORT INFORMATION
  Report Type: Spontaneous
  Country: US (occurrence: US)
  Receive Date: 20240315
  Receipt Date: 20240315
  Transmission Date: 20240409
  Serious: No
  Sender: FDA-Public Use
  Company Number: US-LANTHEUS MEDICAL IMAGING-LMI-2024-00079

PATIENT

DRUGS (1)
  1. PYLARIFY [Suspect]
     Active Substance: PIFLUFOLASTAT F-18
     Indication: Scan
     Dosage: UNK
     Dates: start: 20240119, end: 20240119

REACTIONS (1)
  - Radioisotope scan abnormal [Recovered/Resolved]

NARRATIVE: CASE EVENT DATE: 20240119
